FAERS Safety Report 9587946 (Version 1)
Quarter: 2013Q4

REPORT INFORMATION
  Report Type: Spontaneous
  Country: GB (occurrence: GB)
  Receive Date: 20131003
  Receipt Date: 20131003
  Transmission Date: 20140711
  Serious: Yes (Other)
  Sender: FDA-Public Use
  Company Number: PHHY2013GB107488

PATIENT
  Sex: Male

DRUGS (2)
  1. CO-CODAMOL [Suspect]
     Dosage: 2 DF, QID
  2. ZYTIGA [Interacting]
     Route: 048

REACTIONS (3)
  - Hallucination [Unknown]
  - Nausea [Unknown]
  - Drug interaction [Unknown]
